FAERS Safety Report 4270778-9 (Version None)
Quarter: 2004Q1

REPORT INFORMATION
  Report Type: 
  Country: None (occurrence: None)
  Receive Date: 20040113
  Receipt Date: 20031231
  Transmission Date: 20041129
  Serious: Yes (Hospitalization)
  Sender: FDA-Public Use
  Company Number: US-JNJFOC-20040100460

PATIENT
  Age: 72 Year
  Sex: Female
  Weight: 83.0083 kg

DRUGS (4)
  1. INFLIXIMAB, (INFLIXIMAB, RECOMBINANT) LYOPHILIZED POWDER [Suspect]
     Indication: CROHN'S DISEASE
     Dosage: INTRAVENOUS
     Route: 042
  2. MERCAPTOPURINE [Concomitant]
  3. MESALAZINE (MESALAZINE) [Concomitant]
  4. NARCOTIC ANALGESICS (ANALGESICS) [Concomitant]

REACTIONS (7)
  - COLD SWEAT [None]
  - CYANOSIS [None]
  - DYSPNOEA [None]
  - HYPERHIDROSIS [None]
  - HYPOTENSION [None]
  - OEDEMA PERIPHERAL [None]
  - SYNCOPE [None]
